FAERS Safety Report 9540845 (Version 1)
Quarter: 2013Q3

REPORT INFORMATION
  Report Type: Report from Study
  Country: CA (occurrence: CA)
  Receive Date: 20130920
  Receipt Date: 20130920
  Transmission Date: 20140515
  Serious: Yes (Disabling)
  Sender: FDA-Public Use
  Company Number: PHHY2013CA103979

PATIENT
  Age: 56 Year
  Sex: Male

DRUGS (3)
  1. CLOZARIL [Suspect]
     Indication: SCHIZOAFFECTIVE DISORDER
     Dosage: 100 MG, QHS
     Route: 048
     Dates: start: 20130509, end: 20130913
  2. ABILIFY [Concomitant]
     Dosage: 15 MG, UNK
     Route: 048
  3. CELEXA [Concomitant]
     Dosage: 40 MG, UNK
     Route: 048

REACTIONS (3)
  - Mood altered [Recovered/Resolved]
  - Migraine [Recovered/Resolved]
  - Somnolence [Recovered/Resolved]
